FAERS Safety Report 7751567-7 (Version None)
Quarter: 2011Q3

REPORT INFORMATION
  Report Type: 
  Country: None (occurrence: None)
  Receive Date: 20110914
  Receipt Date: 20110909
  Transmission Date: 20111222
  Serious: Yes (Other)
  Sender: FDA-Public Use
  Company Number: PHHY2010CA15332

PATIENT
  Sex: Male

DRUGS (2)
  1. SANDOSTATIN LAR [Suspect]
     Dosage: 30 MG, QMO
     Route: 030
  2. SANDOSTATIN LAR [Suspect]
     Indication: CARCINOID TUMOUR
     Dosage: 30 MG EVERY 4 WEEKS
     Route: 030
     Dates: start: 20060815

REACTIONS (6)
  - GROIN PAIN [None]
  - BLOOD PRESSURE SYSTOLIC INCREASED [None]
  - ABASIA [None]
  - PAIN [None]
  - NASOPHARYNGITIS [None]
  - BLOOD PRESSURE DIASTOLIC INCREASED [None]
